FAERS Safety Report 8474791-7 (Version None)
Quarter: 2012Q2

REPORT INFORMATION
  Report Type: 
  Country: None (occurrence: None)
  Receive Date: 20120628
  Receipt Date: 20120627
  Transmission Date: 20120825
  Serious: Yes (Other)
  Sender: FDA-Public Use
  Company Number: US-PFIZER INC-2012154946

PATIENT
  Sex: Female

DRUGS (2)
  1. NORVASC [Concomitant]
     Indication: HYPERTENSION
     Dosage: 5MG DAILY
  2. EFFEXOR XR [Suspect]
     Indication: DEPRESSION
     Dosage: 150MG DAILY

REACTIONS (1)
  - UTERINE DISORDER [None]
